FAERS Safety Report 5447757-9 (Version None)
Quarter: 2007Q3

REPORT INFORMATION
  Report Type: 
  Country: None (occurrence: None)
  Receive Date: 20070910
  Receipt Date: 20070402
  Transmission Date: 20080115
  Serious: No
  Sender: FDA-Public Use
  Company Number: US-BRISTOL-MYERS SQUIBB COMPANY-13775614

PATIENT

DRUGS (1)
  1. MUCOMYST [Suspect]
     Route: 055

REACTIONS (5)
  - ASTHENIA [None]
  - DIZZINESS [None]
  - EXPOSURE TO TOXIC AGENT [None]
  - PHARYNGOLARYNGEAL DISCOMFORT [None]
  - THROAT IRRITATION [None]
